FAERS Safety Report 7817082-7 (Version None)
Quarter: 2011Q4

REPORT INFORMATION
  Report Type: 
  Country: None (occurrence: None)
  Receive Date: 20111017
  Receipt Date: 20111010
  Transmission Date: 20120403
  Serious: Yes (Death, Other)
  Sender: FDA-Public Use
  Company Number: PHHY2011MX90267

PATIENT
  Age: 81 Year
  Sex: Male

DRUGS (1)
  1. EXELON [Suspect]
     Indication: DEMENTIA ALZHEIMER'S TYPE
     Dosage: UNK
     Route: 048
     Dates: start: 20101001, end: 20111001

REACTIONS (7)
  - SPEECH DISORDER [None]
  - AKINESIA [None]
  - INSOMNIA [None]
  - PAIN IN EXTREMITY [None]
  - DEATH [None]
  - CEREBRAL THROMBOSIS [None]
  - PNEUMONIA [None]
